FAERS Safety Report 8329515-0 (Version None)
Quarter: 2012Q2

REPORT INFORMATION
  Report Type: 
  Country: None (occurrence: None)
  Receive Date: 20120502
  Receipt Date: 20120426
  Transmission Date: 20120825
  Serious: Yes (Hospitalization)
  Sender: FDA-Public Use
  Company Number: DE-SANOFI-AVENTIS-2012SA029665

PATIENT
  Sex: Male

DRUGS (4)
  1. MULTAQ [Suspect]
     Route: 048
  2. AMIODARONE HCL [Concomitant]
     Route: 042
  3. AMIODARONE HCL [Concomitant]
     Route: 048
  4. AMIODARONE HCL [Concomitant]
     Route: 048

REACTIONS (1)
  - FEELING ABNORMAL [None]
